FAERS Safety Report 7434422-1 (Version None)
Quarter: 2011Q2

REPORT INFORMATION
  Report Type: 
  Country: None (occurrence: None)
  Receive Date: 20110420
  Receipt Date: 20110420
  Transmission Date: 20111010
  Serious: No
  Sender: FDA-Public Use
  Company Number: None

PATIENT
  Sex: Male
  Weight: 103 kg

DRUGS (5)
  1. TAXOL [Suspect]
     Dosage: 30 MG
  2. DOXYCYCLINE [Concomitant]
  3. ALBUTEROL INHALER [Concomitant]
  4. CLONAZEPAM [Concomitant]
  5. VENTOLIN [Concomitant]

REACTIONS (7)
  - BACK PAIN [None]
  - FLUSHING [None]
  - TREMOR [None]
  - ERYTHEMA [None]
  - APHASIA [None]
  - INFUSION RELATED REACTION [None]
  - DYSPNOEA [None]
